FAERS Safety Report 10016907 (Version 7)
Quarter: 2015Q1

REPORT INFORMATION
  Report Type: Report from Study
  Country: US (occurrence: US)
  Receive Date: 20140318
  Receipt Date: 20150115
  Transmission Date: 20150720
  Serious: Yes (Hospitalization)
  Sender: FDA-Public Use
  Company Number: US-BIOGENIDEC-2014BI023154

PATIENT
  Age: 67 Year
  Sex: Female

DRUGS (2)
  1. TYSABRI [Suspect]
     Active Substance: NATALIZUMAB
     Indication: MULTIPLE SCLEROSIS
     Route: 042
     Dates: start: 20130701
  2. TYSABRI [Suspect]
     Active Substance: NATALIZUMAB
     Indication: MULTIPLE SCLEROSIS
     Route: 042
     Dates: start: 20090615, end: 20130422

REACTIONS (21)
  - Cystitis [Recovered/Resolved]
  - Irritability [Recovered/Resolved]
  - Fall [Recovered/Resolved]
  - Multiple sclerosis relapse [Recovered/Resolved]
  - Incoherent [Not Recovered/Not Resolved]
  - Diarrhoea [Not Recovered/Not Resolved]
  - Femur fracture [Recovered/Resolved]
  - Irritable bowel syndrome [Not Recovered/Not Resolved]
  - Tibia fracture [Recovered/Resolved]
  - Nephrolithiasis [Recovered/Resolved]
  - Thrombosis [Recovered/Resolved]
  - Nervousness [Not Recovered/Not Resolved]
  - Joint injury [Recovered/Resolved]
  - Kidney infection [Recovered/Resolved]
  - Hallucination, auditory [Not Recovered/Not Resolved]
  - Speech disorder [Recovered/Resolved]
  - Screaming [Recovered/Resolved]
  - Obstructive uropathy [Recovered/Resolved]
  - Formication [Unknown]
  - Memory impairment [Not Recovered/Not Resolved]
  - Delusion [Not Recovered/Not Resolved]

NARRATIVE: CASE EVENT DATE: 2014
